FAERS Safety Report 8264246-7 (Version None)
Quarter: 2012Q2

REPORT INFORMATION
  Report Type: 
  Country: None (occurrence: None)
  Receive Date: 20120406
  Receipt Date: 20120328
  Transmission Date: 20120825
  Serious: Yes (Other)
  Sender: FDA-Public Use
  Company Number: FR-JNJFOC-20120207104

PATIENT
  Sex: Female
  Weight: 55 kg

DRUGS (3)
  1. REMICADE [Suspect]
     Indication: COLITIS ULCERATIVE
     Route: 042
     Dates: start: 20090101
  2. IMURAN [Concomitant]
     Route: 048
  3. SULFASALAZINE [Concomitant]
     Indication: SACROILIITIS
     Route: 048

REACTIONS (2)
  - TOXIC SKIN ERUPTION [None]
  - LUPUS-LIKE SYNDROME [None]
